FAERS Safety Report 10885257 (Version 1)
Quarter: 2015Q1

REPORT INFORMATION
  Report Type: Report from Study
  Country: IL (occurrence: IL)
  Receive Date: 20150304
  Receipt Date: 20150304
  Transmission Date: 20150721
  Serious: Yes (Hospitalization, Other)
  Sender: FDA-Public Use
  Company Number: PHHY2015IL023404

PATIENT
  Age: 80 Year
  Sex: Female
  Weight: 34 kg

DRUGS (1)
  1. SANDOSTATIN LAR DEPOT [Suspect]
     Active Substance: OCTREOTIDE ACETATE
     Indication: CARCINOID TUMOUR
     Dosage: 30 MG, EVERY 4 WEEKS, Q4W
     Route: 030
     Dates: start: 2010

REACTIONS (2)
  - Weight decreased [Unknown]
  - Lung neoplasm [Unknown]

NARRATIVE: CASE EVENT DATE: 201408
